FAERS Safety Report 5378652-1 (Version None)
Quarter: 2007Q3

REPORT INFORMATION
  Report Type: 
  Country: None (occurrence: None)
  Receive Date: 20070702
  Receipt Date: 20070702
  Transmission Date: 20080115
  Serious: No
  Sender: FDA-Public Use
  Company Number: None

PATIENT
  Age: 59 Year
  Sex: Female
  Weight: 58.514 kg

DRUGS (2)
  1. LEVAQUIN [Suspect]
     Indication: GASTROOESOPHAGEAL REFLUX DISEASE
     Dosage: ONE TABLET EVERY DAY PO
     Route: 048
     Dates: start: 20070425, end: 20070504
  2. LEVAQUIN [Suspect]
     Indication: SINUS DISORDER
     Dosage: ONE TABLET EVERY DAY PO
     Route: 048
     Dates: start: 20070425, end: 20070504

REACTIONS (11)
  - AGEUSIA [None]
  - ANOREXIA [None]
  - ARTHRALGIA [None]
  - ARTHROPATHY [None]
  - ASTHENIA [None]
  - DISCOMFORT [None]
  - DYSGEUSIA [None]
  - HYPOAESTHESIA [None]
  - MALAISE [None]
  - NAUSEA [None]
  - PAIN [None]
